FAERS Safety Report 7384917-4 (Version None)
Quarter: 2011Q1

REPORT INFORMATION
  Report Type: 
  Country: None (occurrence: None)
  Receive Date: 20110323
  Receipt Date: 20110315
  Transmission Date: 20110831
  Serious: Yes (Other)
  Sender: FDA-Public Use
  Company Number: 2011MA002462

PATIENT
  Sex: Male

DRUGS (1)
  1. METOCLOPRAMIDE [Suspect]
     Dates: start: 20030601, end: 20090201

REACTIONS (5)
  - TARDIVE DYSKINESIA [None]
  - INJURY [None]
  - ECONOMIC PROBLEM [None]
  - ILL-DEFINED DISORDER [None]
  - EMOTIONAL DISORDER [None]
